FAERS Safety Report 7077672-9 (Version None)
Quarter: 2010Q4

REPORT INFORMATION
  Report Type: 
  Country: None (occurrence: None)
  Receive Date: 20101101
  Receipt Date: 20101018
  Transmission Date: 20110411
  Serious: Yes (Hospitalization)
  Sender: FDA-Public Use
  Company Number: BR-MEDIMMUNE-MEDI-0011676

PATIENT
  Sex: Female
  Weight: 5.8 kg

DRUGS (4)
  1. SYNAGIS [Suspect]
     Indication: CARDIAC DISORDER
     Route: 030
     Dates: start: 20100419
  2. FUROSEMIDE [Concomitant]
     Route: 048
     Dates: start: 20091208
  3. DIGOXIN [Concomitant]
     Route: 048
     Dates: start: 20091208
  4. CAPTOPRIL [Concomitant]
     Route: 048
     Dates: start: 20100201

REACTIONS (5)
  - ABDOMINAL DISTENSION [None]
  - CRYING [None]
  - INFECTION [None]
  - IRRITABILITY [None]
  - VAGINAL PROLAPSE [None]
